FAERS Safety Report 6847783-9 (Version None)
Quarter: 2010Q3

REPORT INFORMATION
  Report Type: 
  Country: None (occurrence: None)
  Receive Date: 20100716
  Receipt Date: 20100713
  Transmission Date: 20110219
  Serious: Yes (Hospitalization)
  Sender: FDA-Public Use
  Company Number: JP-SANOFI-AVENTIS-2010SA024088

PATIENT
  Age: 67 Year
  Sex: Female
  Weight: 45 kg

DRUGS (9)
  1. PLAVIX [Suspect]
     Route: 048
     Dates: start: 20100415, end: 20100423
  2. PLAVIX [Suspect]
     Indication: PERCUTANEOUS CORONARY INTERVENTION
     Route: 048
     Dates: start: 20100415, end: 20100423
  3. MYONAL [Suspect]
     Dates: start: 20100416
  4. ASPIRIN [Concomitant]
     Indication: ANGINA PECTORIS
     Dosage: 1 TABLET/DAY
     Route: 048
     Dates: start: 20090901
  5. MICARDIS [Concomitant]
     Indication: HYPERTENSION
     Route: 048
     Dates: start: 20090901
  6. MUCOSTA [Concomitant]
     Route: 048
     Dates: start: 20090901
  7. DEPAS [Concomitant]
     Route: 048
     Dates: start: 20090901
  8. ZETIA [Concomitant]
     Indication: HYPERLIPIDAEMIA
     Route: 048
     Dates: start: 20100213
  9. SENNOSIDE A [Concomitant]
     Dates: start: 20090901

REACTIONS (5)
  - ARTHRALGIA [None]
  - CHILLS [None]
  - HYPERAESTHESIA [None]
  - MYALGIA [None]
  - ORAL PAIN [None]
